FAERS Safety Report 13801934 (Version 3)
Quarter: 2018Q1

REPORT INFORMATION
  Report Type: Spontaneous
  Country: US (occurrence: US)
  Receive Date: 20170727
  Receipt Date: 20180227
  Transmission Date: 20180508
  Serious: Yes (Other)
  Sender: FDA-Public Use
  Company Number: US-LUNDBECK-DKLU2034446

PATIENT
  Sex: Male

DRUGS (7)
  1. TRILEPTAL [Concomitant]
     Active Substance: OXCARBAZEPINE
     Indication: PRODUCT USED FOR UNKNOWN INDICATION
     Route: 065
  2. DILANTIN [Concomitant]
     Active Substance: PHENYTOIN
     Indication: SEIZURE
     Route: 048
  3. ONFI [Suspect]
     Active Substance: CLOBAZAM
     Route: 048
  4. ONFI [Suspect]
     Active Substance: CLOBAZAM
     Indication: EPILEPSY
     Route: 048
     Dates: start: 20170524
  5. DILANTIN [Concomitant]
     Active Substance: PHENYTOIN
     Route: 065
  6. ONFI [Suspect]
     Active Substance: CLOBAZAM
     Route: 048
     Dates: start: 201706
  7. TOPAMAX [Concomitant]
     Active Substance: TOPIRAMATE
     Indication: PRODUCT USED FOR UNKNOWN INDICATION
     Route: 065

REACTIONS (2)
  - Seizure [Recovered/Resolved]
  - Insomnia [Recovered/Resolved]
